FAERS Safety Report 21609655 (Version 5)
Quarter: 2025Q3

REPORT INFORMATION
  Report Type: Report from Study
  Country: US (occurrence: US)
  Receive Date: 20221117
  Receipt Date: 20250702
  Transmission Date: 20251021
  Serious: Yes (Other)
  Sender: PFIZER
  Company Number: US-PFIZER INC-PV202200105042

PATIENT
  Age: 64 Year
  Sex: Female

DRUGS (22)
  1. XELJANZ XR [Suspect]
     Active Substance: TOFACITINIB CITRATE
     Indication: Rheumatoid arthritis
     Dosage: TAKE 1 TABLET ORALLY ONCE A DAY FOR 30 DAYS
     Route: 048
     Dates: start: 20210805
  2. HYDROCODONE BITARTRATE AND ACETAMINOPHEN [Concomitant]
     Active Substance: ACETAMINOPHEN\HYDROCODONE BITARTRATE
  3. METHOTREXATE SODIUM [Concomitant]
     Active Substance: METHOTREXATE SODIUM
  4. POTASSIUM CITRATE [Concomitant]
     Active Substance: POTASSIUM CITRATE
  5. VITAMIN D3 [Concomitant]
     Active Substance: CHOLECALCIFEROL
  6. ALENDRONATE [Concomitant]
     Active Substance: ALENDRONATE SODIUM
  7. EZETIMIBE [Concomitant]
     Active Substance: EZETIMIBE
  8. GLIMEPIRIDE [Concomitant]
     Active Substance: GLIMEPIRIDE
  9. HYOSCYAMINE [Concomitant]
     Active Substance: HYOSCYAMINE
  10. LEVOTHYROXINE [Concomitant]
     Active Substance: LEVOTHYROXINE
  11. HYDROCHLOROTHIAZIDE\LOSARTAN POTASSIUM [Concomitant]
     Active Substance: HYDROCHLOROTHIAZIDE\LOSARTAN POTASSIUM
  12. METHOTREXATE [Concomitant]
     Active Substance: METHOTREXATE
  13. METHYLPREDNISOLONE [Concomitant]
     Active Substance: METHYLPREDNISOLONE
  14. METOPROLOL SUCCINATE [Concomitant]
     Active Substance: METOPROLOL SUCCINATE
  15. POTASSIUM CHLORIDE [Concomitant]
     Active Substance: POTASSIUM CHLORIDE
  16. FUROSEMIDE [Concomitant]
     Active Substance: FUROSEMIDE
  17. POTASSIUM [Concomitant]
     Active Substance: POTASSIUM
  18. ELIQUIS [Concomitant]
     Active Substance: APIXABAN
  19. LOSARTAN [Concomitant]
     Active Substance: LOSARTAN
  20. METOPROLOL [Concomitant]
     Active Substance: METOPROLOL
  21. OZEMPIC [Concomitant]
     Active Substance: SEMAGLUTIDE
  22. VASHE [Concomitant]

REACTIONS (10)
  - Cervix carcinoma [Not Recovered/Not Resolved]
  - Drug ineffective [Unknown]
  - Disease progression [Not Recovered/Not Resolved]
  - Condition aggravated [Not Recovered/Not Resolved]
  - Pain [Not Recovered/Not Resolved]
  - Arthritis [Unknown]
  - Discomfort [Unknown]
  - Loss of personal independence in daily activities [Unknown]
  - Fatigue [Not Recovered/Not Resolved]
  - Arthralgia [Not Recovered/Not Resolved]

NARRATIVE: CASE EVENT DATE: 20241205
